FAERS Safety Report 4398187-2 (Version None)
Quarter: 2004Q3

REPORT INFORMATION
  Report Type: 
  Country: None (occurrence: None)
  Receive Date: 20040713
  Receipt Date: 20040706
  Transmission Date: 20050211
  Serious: Yes (Hospitalization)
  Sender: FDA-Public Use
  Company Number: 2004CG01322

PATIENT
  Age: 72 Year
  Sex: Male

DRUGS (9)
  1. NEXIUM [Suspect]
     Dosage: 1 DF DAILY PO
     Route: 048
     Dates: start: 20040620, end: 20040622
  2. ESIDRIX [Concomitant]
  3. RUBOZINC [Concomitant]
  4. LACTULOSE [Concomitant]
  5. BENERVA [Concomitant]
  6. LEGALON [Concomitant]
  7. COSOPT [Concomitant]
  8. XALATAN [Concomitant]
  9. IOPIDINE [Concomitant]

REACTIONS (4)
  - ASTHENIA [None]
  - DECREASED APPETITE [None]
  - HEPATIC ENCEPHALOPATHY [None]
  - PLATELET COUNT DECREASED [None]
